FAERS Safety Report 6621912-4 (Version None)
Quarter: 2010Q1

REPORT INFORMATION
  Report Type: 
  Country: None (occurrence: None)
  Receive Date: 20100303
  Receipt Date: 20100225
  Transmission Date: 20100710
  Serious: Yes (Other)
  Sender: FDA-Public Use
  Company Number: DSA_42163_2009

PATIENT
  Sex: Male
  Weight: 42.7 kg

DRUGS (7)
  1. XENAZINE [Suspect]
     Indication: TIC
     Dosage: SEE IMAGE
     Route: 048
     Dates: start: 20090101, end: 20090101
  2. XENAZINE [Suspect]
     Indication: TIC
     Dosage: SEE IMAGE
     Route: 048
     Dates: start: 20090101, end: 20090101
  3. XENAZINE [Suspect]
     Indication: TIC
     Dosage: SEE IMAGE
     Route: 048
     Dates: start: 20091006, end: 20090101
  4. XENAZINE [Suspect]
     Indication: TIC
     Dosage: SEE IMAGE
     Route: 048
     Dates: start: 20090901, end: 20091005
  5. XENAZINE [Suspect]
     Indication: TIC
     Dosage: SEE IMAGE
     Route: 048
     Dates: start: 20090101
  6. MULTIVITAMIN /00831701/ [Concomitant]
  7. KEPPRA [Concomitant]

REACTIONS (3)
  - CONVULSION [None]
  - DYSTONIA [None]
  - SOMNOLENCE [None]
